FAERS Safety Report 23888512 (Version 1)
Quarter: 2024Q2

REPORT INFORMATION
  Report Type: Spontaneous
  Country: US (occurrence: None)
  Receive Date: 20240522
  Receipt Date: 20240522
  Transmission Date: 20240716
  Serious: Yes (Hospitalization)
  Sender: FDA-Public Use
  Company Number: None

PATIENT
  Age: 51 Year
  Sex: Female
  Weight: 72.7 kg

DRUGS (2)
  1. IMIPENEM AND CILASTATIN [Suspect]
     Active Substance: CILASTATIN SODIUM\IMIPENEM
     Indication: Tuberculosis
     Dosage: 1000 MG TWICE A DAY INTRAVENOUS BOLUS?
     Route: 040
     Dates: start: 20240412, end: 20240414
  2. TIGECYCLINE [Concomitant]
     Active Substance: TIGECYCLINE

REACTIONS (3)
  - Hypersensitivity [None]
  - Abdominal pain [None]
  - Infusion related reaction [None]

NARRATIVE: CASE EVENT DATE: 20240414
